FAERS Safety Report 25272788 (Version 4)
Quarter: 2025Q3

REPORT INFORMATION
  Report Type: Other
  Country: US (occurrence: US)
  Receive Date: 20250506
  Receipt Date: 20250915
  Transmission Date: 20251020
  Serious: No
  Sender: TRAVERE THERAPEUTICS
  Company Number: US-TRAVERE-2025TVT00508

PATIENT
  Age: 51 Year
  Sex: Female

DRUGS (2)
  1. FILSPARI [Suspect]
     Active Substance: SPARSENTAN
     Indication: IgA nephropathy
     Route: 048
     Dates: start: 20250406
  2. FILSPARI [Suspect]
     Active Substance: SPARSENTAN
     Route: 048
     Dates: start: 20250422

REACTIONS (4)
  - Fatigue [Unknown]
  - Product administration error [Unknown]
  - Off label use [Unknown]
  - Pruritus [Unknown]
